FAERS Safety Report 24848654 (Version 1)
Quarter: 2025Q1

REPORT INFORMATION
  Report Type: Spontaneous
  Country: TH (occurrence: TH)
  Receive Date: 20250116
  Receipt Date: 20250116
  Transmission Date: 20250409
  Serious: Yes (Other)
  Sender: ROCHE
  Company Number: TH-ROCHE-10000175167

PATIENT
  Age: 57 Year
  Sex: Female

DRUGS (4)
  1. PERTUZUMAB [Suspect]
     Active Substance: PERTUZUMAB
     Indication: Breast cancer
     Route: 065
  2. TRASTUZUMAB [Suspect]
     Active Substance: TRASTUZUMAB
     Indication: Breast cancer
     Route: 065
  3. DOCETAXEL [Suspect]
     Active Substance: DOCETAXEL
     Indication: Breast cancer
     Route: 065
  4. CARBOPLATIN [Suspect]
     Active Substance: CARBOPLATIN
     Indication: Breast cancer
     Route: 065

REACTIONS (10)
  - Polymerase chain reaction positive [Unknown]
  - Hepatotoxicity [Unknown]
  - Haemorrhage [Unknown]
  - Thrombocytopenia [Unknown]
  - Type I hypersensitivity [Unknown]
  - Neoplasm [Unknown]
  - Infusion related reaction [Unknown]
  - Cardiac dysfunction [Unknown]
  - Pulmonary toxicity [Unknown]
  - Neuropathy peripheral [Unknown]
